FAERS Safety Report 8477968-X (Version None)
Quarter: 2012Q2

REPORT INFORMATION
  Report Type: 
  Country: None (occurrence: None)
  Receive Date: 20120629
  Receipt Date: 20120622
  Transmission Date: 20120825
  Serious: Yes (Death, Hospitalization)
  Sender: FDA-Public Use
  Company Number: FR-BRISTOL-MYERS SQUIBB COMPANY-16708596

PATIENT
  Age: 47 Year
  Sex: Male

DRUGS (2)
  1. LOXAPINE HCL [Suspect]
     Dosage: IN THE EVE
  2. ABILIFY [Suspect]
     Indication: BIPOLAR DISORDER
     Dosage: 1 DF = 20 OR 30 MG,STABLE FOR MORE THAN 1 YEAR

REACTIONS (3)
  - DEATH [None]
  - ACUTE CORONARY SYNDROME [None]
  - PYREXIA [None]
